FAERS Safety Report 18725662 (Version 1)
Quarter: 2021Q1

REPORT INFORMATION
  Report Type: Spontaneous
  Country: US (occurrence: US)
  Receive Date: 20210111
  Receipt Date: 20210111
  Transmission Date: 20210419
  Serious: Yes (Death, Life-Threatening, Hospitalization)
  Sender: FDA-Public Use
  Company Number: US-MYLANLABS-2021M1000862

PATIENT
  Age: 31 Year
  Sex: Male

DRUGS (2)
  1. ACETAMINOPHEN. [Suspect]
     Active Substance: ACETAMINOPHEN
     Indication: PRODUCT USED FOR UNKNOWN INDICATION
     Dosage: 100 DOSAGE FORM, TOTAL TABLET
     Route: 048
  2. FERROUS SULFATE. [Suspect]
     Active Substance: FERROUS SULFATE
     Indication: PRODUCT USED FOR UNKNOWN INDICATION
     Dosage: 100 DOSAGE FORM, TOTAL TABLET
     Route: 048

REACTIONS (11)
  - Intentional overdose [Fatal]
  - Unresponsive to stimuli [Unknown]
  - Hypotension [Unknown]
  - Acidosis [Unknown]
  - Vomiting [Unknown]
  - Toxicity to various agents [Fatal]
  - Lethargy [Unknown]
  - Haemodynamic instability [Unknown]
  - Abdominal pain [Unknown]
  - Gastric haemorrhage [Unknown]
  - Acute hepatic failure [Fatal]
